FAERS Safety Report 10311421 (Version 2)
Quarter: 2014Q3

REPORT INFORMATION
  Report Type: Spontaneous
  Country: US (occurrence: US)
  Receive Date: 20140717
  Receipt Date: 20140807
  Transmission Date: 20150326
  Serious: Yes (Other)
  Sender: FDA-Public Use
  Company Number: US-BAYER-2014-107369

PATIENT
  Age: 30 Year
  Sex: Female
  Weight: 122.45 kg

DRUGS (4)
  1. YASMIN [Suspect]
     Active Substance: DROSPIRENONE\ETHINYL ESTRADIOL
  2. YAZ [Suspect]
     Active Substance: DROSPIRENONE\ETHINYL ESTRADIOL
     Dosage: UNK
     Dates: start: 200612, end: 200811
  3. TYLENOL WITH CODEINE [Concomitant]
     Active Substance: ACETAMINOPHEN\CODEINE PHOSPHATE
  4. PERCOCET [Concomitant]
     Active Substance: ACETAMINOPHEN\OXYCODONE HYDROCHLORIDE

REACTIONS (8)
  - Pain [None]
  - General physical health deterioration [Recovered/Resolved]
  - Thrombophlebitis superficial [None]
  - Pain [Recovered/Resolved]
  - Anxiety [None]
  - Injury [Recovered/Resolved]
  - Deep vein thrombosis [Recovered/Resolved]
  - Emotional distress [None]

NARRATIVE: CASE EVENT DATE: 20080219
